FAERS Safety Report 24634526 (Version 1)
Quarter: 2024Q4

REPORT INFORMATION
  Report Type: Spontaneous
  Country: US (occurrence: US)
  Receive Date: 20241119
  Receipt Date: 20241119
  Transmission Date: 20250115
  Serious: Yes (Other)
  Sender: HIKMA
  Company Number: US-HIKMA PHARMACEUTICALS USA INC.-US-H14001-24-10569

PATIENT
  Age: 8 Decade
  Sex: Female

DRUGS (5)
  1. AMOXICILLIN [Suspect]
     Active Substance: AMOXICILLIN
     Indication: Product used for unknown indication
     Dosage: 500 MILLIGRAM, Q8H, 500MG, PO 3 TIMES/DAY FOR 5 DAYS
     Route: 048
     Dates: start: 2021
  2. AMOXICILLIN\CLAVULANIC ACID [Suspect]
     Active Substance: AMOXICILLIN\CLAVULANIC ACID
     Indication: Product used for unknown indication
     Dosage: UNK, 10-DAY COURSE OF AUGMENTIN
     Dates: start: 2021
  3. BONIVA [Suspect]
     Active Substance: IBANDRONATE SODIUM
     Indication: Osteoporosis
     Dosage: UNK, 10-YEAR ORAL IBANDRONATE (BONIVA) USE
     Route: 048
     Dates: start: 2011
  4. CEFTRIAXONE [Suspect]
     Active Substance: CEFTRIAXONE
     Indication: Antibiotic therapy
     Dosage: 2 GRAM, HER TREATMENT REGIMEN WAS INTENSIFIED WITH THE PLACEMENT OF A CENTRAL CATHETER FOR INTRAVENO
     Route: 042
  5. MOXIFLOXACIN [Suspect]
     Active Substance: MOXIFLOXACIN
     Indication: Antibiotic therapy
     Dosage: 400 MILLIGRAM, 4-WEEK COURSE OF ORAL MOXIFLOXACIN (400 MG)
     Route: 048
     Dates: start: 2021

REACTIONS (4)
  - Osteonecrosis of jaw [Unknown]
  - Oral mucosal hypertrophy [Unknown]
  - Condition aggravated [Unknown]
  - Osteomyelitis [Unknown]

NARRATIVE: CASE EVENT DATE: 20200101
